FAERS Safety Report 4283216-7 (Version None)
Quarter: 2004Q1

REPORT INFORMATION
  Report Type: 
  Country: None (occurrence: None)
  Receive Date: 20040129
  Receipt Date: 20040122
  Transmission Date: 20041129
  Serious: Yes (Disabling)
  Sender: FDA-Public Use
  Company Number: 2004194379GB

PATIENT
  Age: 70 Year
  Sex: Female
  Weight: 73 kg

DRUGS (10)
  1. CELEBREX [Suspect]
     Indication: ARTHRALGIA
     Dosage: 100 MG, QD, ORAL
     Route: 048
     Dates: start: 20031206
  2. ETORICOXIB (ETORICOXIB) [Suspect]
     Indication: ARTHRALGIA
     Dosage: 60 MG, QD, ORAL
     Route: 048
     Dates: start: 20030706, end: 20031014
  3. ETORICOXIB (ETORICOXIB) [Suspect]
     Indication: PAIN
     Dosage: 60 MG, QD, ORAL
     Route: 048
     Dates: start: 20030706, end: 20031014
  4. ROFECOXIB [Concomitant]
  5. CO-PROXAMOL (DEXTROPROPOXYPHENE  HYDROCHLORIDE) [Concomitant]
  6. RANITIDINE [Concomitant]
  7. GLUCOSAMINE [Concomitant]
  8. DICLOFENAC [Concomitant]
  9. THYROXIN (LEVOTHYROXINE SODIUM) [Concomitant]
  10. ADCAL  (CARBAZOCHROME) [Concomitant]

REACTIONS (6)
  - DIFFICULTY IN WALKING [None]
  - MUSCULAR WEAKNESS [None]
  - MYALGIA [None]
  - SENSATION OF HEAVINESS [None]
  - THYROXINE FREE INCREASED [None]
  - TRI-IODOTHYRONINE FREE INCREASED [None]
